FAERS Safety Report 9995519 (Version 1)
Quarter: 2014Q1

REPORT INFORMATION
  Report Type: Spontaneous
  Country: US (occurrence: None)
  Receive Date: 20140306
  Receipt Date: 20140306
  Transmission Date: 20141002
  Serious: Yes (Hospitalization)
  Sender: FDA-Public Use
  Company Number: IMP_07488_2014

PATIENT
  Age: 16 Year
  Sex: Female

DRUGS (4)
  1. BUPROPRION [Suspect]
     Indication: PRODUCT USED FOR UNKNOWN INDICATION
     Dosage: (DF [NOT  THE PRESCRIBED AMOUNT]))
  2. FLUOXETINE [Suspect]
     Indication: PRODUCT USED FOR UNKNOWN INDICATION
     Dosage: (DF [NOT  THE PRESCRIBED AMOUNT]))
  3. ARIPIPRAZOLE [Suspect]
     Indication: PRODUCT USED FOR UNKNOWN INDICATION
     Dosage: (DF [NOT  THE PRESCRIBED AMOUNT]))
  4. TOPIRAMATE [Suspect]
     Indication: PRODUCT USED FOR UNKNOWN INDICATION
     Dosage: (DF [NOT  THE PRESCRIBED AMOUNT]))

REACTIONS (3)
  - Convulsion [None]
  - Drug abuse [None]
  - Intentional overdose [None]
